FAERS Safety Report 13219969 (Version 2)
Quarter: 2017Q1

REPORT INFORMATION
  Report Type: Spontaneous
  Country: CA (occurrence: CA)
  Receive Date: 20170210
  Receipt Date: 20170224
  Transmission Date: 20170428
  Serious: Yes (Hospitalization, Other)
  Sender: FDA-Public Use
  Company Number: CA-ORION CORPORATION ORION PHARMA-TREX2017-0328

PATIENT
  Age: 37 Year
  Sex: Female
  Weight: 54.2 kg

DRUGS (1)
  1. METHOTREXATE (TRADE NAME UNKNOWN) [Suspect]
     Active Substance: METHOTREXATE
     Indication: RHEUMATOID ARTHRITIS
     Route: 048
     Dates: start: 2004, end: 2004

REACTIONS (2)
  - Drug intolerance [Recovered/Resolved]
  - Angioedema [Recovered/Resolved]
